FAERS Safety Report 9777512 (Version 2)
Quarter: 2014Q1

REPORT INFORMATION
  Report Type: Spontaneous
  Country: PL (occurrence: PL)
  Receive Date: 20131222
  Receipt Date: 20140101
  Transmission Date: 20141002
  Serious: Yes (Hospitalization)
  Sender: FDA-Public Use
  Company Number: PHHY2013PL147396

PATIENT
  Age: 30 Year
  Sex: Male

DRUGS (18)
  1. CLOZAPINE [Suspect]
     Dosage: 450 MG
  2. OLANZAPINE [Suspect]
  3. CLONAZEPAM [Suspect]
     Dosage: 10 MG
  4. CLONAZEPAM [Suspect]
     Dosage: 1.5 MG
  5. FLUVOXAMINE [Suspect]
  6. LITHIUM CARBONATE [Suspect]
     Dosage: 750 MG
  7. CARBAMAZEPINE [Concomitant]
     Dosage: 75 MG
  8. CARBAMAZEPINE [Concomitant]
     Dosage: 400 MG
  9. CARBAMAZEPINE [Concomitant]
     Dosage: 400 MG
  10. CARBAMAZEPINE [Concomitant]
     Dosage: 200 MG
  11. CLOMIPRAMINE HYDROCHLORIDE [Concomitant]
     Dosage: 75 MG
  12. CLOMIPRAMINE HYDROCHLORIDE [Concomitant]
     Dosage: 150 MG
  13. RISPERIDONE [Concomitant]
  14. PERPHENAZINE [Concomitant]
  15. ZOLAFREN [Concomitant]
     Dosage: 15 MG, DAILY
  16. SERTRALINE [Concomitant]
     Dosage: 200 MG
  17. PERAZINE [Concomitant]
     Dosage: 200 MG
  18. HYDROXYZINE [Concomitant]

REACTIONS (18)
  - Obsessive-compulsive disorder [Recovering/Resolving]
  - Anxiety [Unknown]
  - Somatic delusion [Recovering/Resolving]
  - Abulia [Unknown]
  - Apathy [Unknown]
  - Sleep disorder [Unknown]
  - Electroencephalogram abnormal [Unknown]
  - Tremor [Unknown]
  - Tachycardia [Unknown]
  - Blood pressure increased [Unknown]
  - Weight increased [Unknown]
  - Obsessive thoughts [Recovering/Resolving]
  - Fear [Recovered/Resolved]
  - Hyperventilation [Unknown]
  - Depressed mood [Recovering/Resolving]
  - Suicidal behaviour [Unknown]
  - Drug withdrawal syndrome [Unknown]
  - Drug ineffective [Unknown]
